FAERS Safety Report 4923862-8 (Version None)
Quarter: 2006Q1

REPORT INFORMATION
  Report Type: 
  Country: None (occurrence: None)
  Receive Date: 20060224
  Receipt Date: 20060224
  Transmission Date: 20060701
  Serious: Yes (Life-Threatening, Hospitalization, Disabling)
  Sender: FDA-Public Use
  Company Number: None

PATIENT
  Age: 54 Year
  Sex: Female
  Weight: 75 kg

DRUGS (1)
  1. FEMHRT [Suspect]
     Indication: MENOPAUSE
     Dosage: 1 QDAY PO
     Route: 048

REACTIONS (1)
  - DEEP VEIN THROMBOSIS [None]
